FAERS Safety Report 16548537 (Version 1)
Quarter: 2019Q3

REPORT INFORMATION
  Report Type: Spontaneous
  Country: SE (occurrence: SE)
  Receive Date: 20190709
  Receipt Date: 20190709
  Transmission Date: 20191004
  Serious: Yes (Hospitalization)
  Sender: FDA-Public Use
  Company Number: SE-MYLANLABS-2019M1064030

PATIENT
  Age: 59 Year
  Sex: Male

DRUGS (1)
  1. DIKLOFENAK MYLAN, 50 MG SUPPOSITORIUM [Suspect]
     Active Substance: DICLOFENAC SODIUM
     Indication: HERPES ZOSTER
     Dosage: UNK UNK, PRN (1X3 VID BEHOV)
     Route: 065
     Dates: start: 20190101

REACTIONS (1)
  - Ischaemic cerebral infarction [Recovering/Resolving]

NARRATIVE: CASE EVENT DATE: 20190115
